FAERS Safety Report 5337832-1 (Version None)
Quarter: 2007Q2

REPORT INFORMATION
  Report Type: 
  Country: None (occurrence: None)
  Receive Date: 20070308
  Receipt Date: 20061227
  Transmission Date: 20071010
  Serious: No
  Sender: FDA-Public Use
  Company Number: 2007-BP-00049PF

PATIENT
  Age: 70 Year
  Sex: Female
  Weight: 49.9 kg

DRUGS (6)
  1. SPIRIVA [Suspect]
     Indication: EMPHYSEMA
     Dosage: 18 MCG (18 MCG, 1 IN 1 D), IH
     Route: 055
     Dates: start: 20061201
  2. CHANTIX [Suspect]
     Indication: EX-SMOKER
     Dosage: 1 MG (0.5 MG, 2 IN 1 D)
     Dates: start: 20061223
  3. ADVAIR (SERETIDE) [Concomitant]
  4. OMEPRAZOLE [Concomitant]
  5. FOSAMAX [Concomitant]
  6. LIPITOR [Concomitant]

REACTIONS (1)
  - FEELING JITTERY [None]
